FAERS Safety Report 9255736 (Version 2)
Quarter: 2013Q2

REPORT INFORMATION
  Report Type: Report from Study
  Country: US (occurrence: US)
  Receive Date: 20130425
  Receipt Date: 20130628
  Transmission Date: 20140414
  Serious: Yes (Other)
  Sender: FDA-Public Use
  Company Number: US-ABBOTT-13P-163-1049107-00

PATIENT
  Age: 39 Year
  Sex: Female
  Weight: 72.19 kg

DRUGS (5)
  1. HUMIRA [Suspect]
     Indication: COLITIS ULCERATIVE
     Dates: start: 20100925, end: 201302
  2. LIALDA [Concomitant]
     Indication: PROPHYLAXIS
  3. LIALDA [Concomitant]
     Indication: NEOPLASM MALIGNANT
  4. MULTIPLE VITAMINS [Concomitant]
     Indication: PRODUCT USED FOR UNKNOWN INDICATION
  5. CALCIUM [Concomitant]
     Indication: PRODUCT USED FOR UNKNOWN INDICATION

REACTIONS (15)
  - Nodule [Recovered/Resolved]
  - Erythema [Recovered/Resolved]
  - Tenderness [Recovered/Resolved]
  - Local swelling [Recovered/Resolved]
  - Nodule [Recovered/Resolved]
  - Staphylococcal skin infection [Not Recovered/Not Resolved]
  - Staphylococcal infection [Unknown]
  - Staphylococcal infection [Unknown]
  - Acne [Not Recovered/Not Resolved]
  - Inappropriate schedule of drug administration [Not Recovered/Not Resolved]
  - Menstruation irregular [Recovered/Resolved]
  - Headache [Not Recovered/Not Resolved]
  - Alopecia [Recovering/Resolving]
  - Stress [Unknown]
  - Staphylococcal infection [Unknown]
